FAERS Safety Report 23329724 (Version 1)
Quarter: 2023Q4

REPORT INFORMATION
  Report Type: Spontaneous
  Country: US (occurrence: US)
  Receive Date: 20231222
  Receipt Date: 20231222
  Transmission Date: 20240109
  Serious: No
  Sender: FDA-Public Use
  Company Number: US-OPELLA-2023OHG019436

PATIENT
  Age: 3 Year
  Sex: Female

DRUGS (1)
  1. CORTIZONE 10 PLUS [Suspect]
     Active Substance: HYDROCORTISONE

REACTIONS (2)
  - Accidental exposure to product [Unknown]
  - No adverse event [Unknown]
